FAERS Safety Report 14819313 (Version 2)
Quarter: 2018Q2

REPORT INFORMATION
  Report Type: Spontaneous
  Country: KR (occurrence: KR)
  Receive Date: 20180427
  Receipt Date: 20180511
  Transmission Date: 20180711
  Serious: Yes (Hospitalization, Other)
  Sender: FDA-Public Use
  Company Number: KR-BAYER-2018-078097

PATIENT
  Sex: Female
  Weight: 65 kg

DRUGS (2)
  1. QLAIRA [Suspect]
     Active Substance: DIENOGEST\ESTRADIOL VALERATE
     Indication: AMENORRHOEA
  2. YAZ [Suspect]
     Active Substance: DROSPIRENONE\ETHINYL ESTRADIOL
     Indication: DYSMENORRHOEA
     Route: 048

REACTIONS (12)
  - Blood pressure increased [None]
  - Nausea [None]
  - Suffocation feeling [None]
  - Product use in unapproved indication [None]
  - Thrombosis [None]
  - Skin disorder [None]
  - Metrorrhagia [None]
  - Embolic cerebral infarction [None]
  - Off label use [None]
  - Pulmonary embolism [None]
  - Back disorder [None]
  - Dyspnoea [None]
